FAERS Safety Report 6898753-6 (Version None)
Quarter: 2010Q3

REPORT INFORMATION
  Report Type: 
  Country: None (occurrence: None)
  Receive Date: 20100802
  Receipt Date: 20071123
  Transmission Date: 20110219
  Serious: Yes (Hospitalization, Other)
  Sender: FDA-Public Use
  Company Number: US-PFIZER INC-2007087237

PATIENT
  Sex: Female
  Weight: 49.9 kg

DRUGS (7)
  1. LYRICA [Suspect]
     Indication: POST HERPETIC NEURALGIA
     Route: 048
     Dates: start: 20071013, end: 20071014
  2. BACLOFEN [Concomitant]
     Indication: MULTIPLE SCLEROSIS
     Dosage: 20MG TWICE A DAY AND 10MG AT BEDTIME
  3. VALTREX [Concomitant]
     Indication: HERPES ZOSTER
     Route: 048
  4. VICODIN [Concomitant]
     Dosage: 5/500 ONE EVERY 4 HOURS WHEN NEEDED
  5. LISINOPRIL [Concomitant]
  6. OMEPRAZOLE [Concomitant]
  7. DOCUSATE SODIUM [Concomitant]

REACTIONS (1)
  - SOMNOLENCE [None]
